FAERS Safety Report 25178173 (Version 1)
Quarter: 2025Q2

REPORT INFORMATION
  Report Type: Spontaneous
  Country: US (occurrence: US)
  Receive Date: 20250409
  Receipt Date: 20250409
  Transmission Date: 20250716
  Serious: Yes (Hospitalization)
  Sender: ZEALAND PHARMACEUTICALS
  Company Number: US-ZPPROD-ZP24US000898

PATIENT

DRUGS (1)
  1. ZEGALOGUE [Suspect]
     Active Substance: DASIGLUCAGON
     Indication: Diabetes mellitus
     Route: 058

REACTIONS (1)
  - Diabetes mellitus inadequate control [Recovering/Resolving]

NARRATIVE: CASE EVENT DATE: 20240605
